FAERS Safety Report 10501272 (Version 1)
Quarter: 2014Q4

REPORT INFORMATION
  Report Type: Spontaneous
  Country: US (occurrence: None)
  Receive Date: 20141006
  Receipt Date: 20141006
  Transmission Date: 20150528
  Serious: No
  Sender: FDA-Public Use
  Company Number: None

PATIENT
  Age: 55 Year
  Sex: Male
  Weight: 90.27 kg

DRUGS (1)
  1. OMEGA 3 1 GRAM PAR [Suspect]
     Active Substance: OMEGA-3 FATTY ACIDS
     Indication: BLOOD TRIGLYCERIDES INCREASED
     Dosage: 2 PILLS TWICE DAILY TAKEN BY MOUTH
     Route: 048
     Dates: start: 20140901, end: 20141004

REACTIONS (5)
  - Product substitution issue [None]
  - Vomiting [None]
  - Nausea [None]
  - Eructation [None]
  - Product quality issue [None]

NARRATIVE: CASE EVENT DATE: 20140901
